FAERS Safety Report 7816069-8 (Version None)
Quarter: 2011Q4

REPORT INFORMATION
  Report Type: 
  Country: None (occurrence: None)
  Receive Date: 20111015
  Receipt Date: 20111005
  Transmission Date: 20120403
  Serious: Yes (Other)
  Sender: FDA-Public Use
  Company Number: CA-ASTRAZENECA-2011SE45086

PATIENT
  Age: 48 Year
  Sex: Female

DRUGS (6)
  1. ANTI ANXIETY MEDICATION [Concomitant]
     Route: 048
     Dates: start: 20100101
  2. NOLVADEX [Suspect]
     Route: 048
     Dates: start: 20110616
  3. AMILORIDE HYDROCHLORIDE [Concomitant]
     Indication: BLOOD PRESSURE ABNORMAL
     Route: 048
  4. ARIMIDEX [Suspect]
     Route: 048
     Dates: start: 20110527, end: 20110616
  5. NOLVADEX [Suspect]
     Indication: BREAST CANCER
     Dosage: ONCE DAILY
     Route: 048
     Dates: start: 20080101, end: 20110527
  6. ARIMIDEX [Suspect]
     Route: 048
     Dates: start: 20070601, end: 20080101

REACTIONS (4)
  - BLOOD OESTROGEN INCREASED [None]
  - DIARRHOEA HAEMORRHAGIC [None]
  - MENORRHAGIA [None]
  - DIABETES MELLITUS [None]
